FAERS Safety Report 19200172 (Version 3)
Quarter: 2021Q2

REPORT INFORMATION
  Report Type: Spontaneous
  Country: US (occurrence: US)
  Receive Date: 20210430
  Receipt Date: 20210614
  Transmission Date: 20210717
  Serious: No
  Sender: FDA-Public Use
  Company Number: US-GLAXOSMITHKLINE-USCH2021023745

PATIENT
  Age: 47 Year
  Sex: Female

DRUGS (1)
  1. ADVIL LIQUI?GELS [Suspect]
     Active Substance: IBUPROFEN
     Indication: PAIN
     Dosage: UNK
     Dates: start: 20210422

REACTIONS (2)
  - Illness [Unknown]
  - Product complaint [Unknown]

NARRATIVE: CASE EVENT DATE: 20210423
